FAERS Safety Report 12255491 (Version 1)
Quarter: 2016Q2

REPORT INFORMATION
  Report Type: Spontaneous
  Country: US (occurrence: None)
  Receive Date: 20160411
  Receipt Date: 20160411
  Transmission Date: 20160815
  Serious: Yes (Death)
  Sender: FDA-Public Use
  Company Number: None

PATIENT
  Age: 84 Year
  Sex: Female

DRUGS (8)
  1. SYNTHROID [Concomitant]
     Active Substance: LEVOTHYROXINE SODIUM
  2. IBRANCE [Concomitant]
     Active Substance: PALBOCICLIB
  3. CAPECITABINE 500 MG MYLAN [Suspect]
     Active Substance: CAPECITABINE
     Indication: INVASIVE DUCTAL BREAST CARCINOMA
     Dosage: 500MG TABLETS 2 TABLETS 2 X A DAY ORAL
     Route: 048
     Dates: start: 20160402, end: 20160404
  4. LOSARTIN [Suspect]
     Active Substance: LOSARTAN
  5. LETROZOLE. [Suspect]
     Active Substance: LETROZOLE
  6. DILTIAZEM [Concomitant]
     Active Substance: DILTIAZEM
  7. PRAVASTATIN [Concomitant]
     Active Substance: PRAVASTATIN\PRAVASTATIN SODIUM
  8. HYDROCODONE [Concomitant]
     Active Substance: HYDROCODONE

REACTIONS (3)
  - Fatigue [None]
  - Oral pain [None]
  - Decreased appetite [None]

NARRATIVE: CASE EVENT DATE: 20160406
